FAERS Safety Report 18017269 (Version 2)
Quarter: 2020Q3

REPORT INFORMATION
  Report Type: Spontaneous
  Country: CH (occurrence: CH)
  Receive Date: 20200713
  Receipt Date: 20200812
  Transmission Date: 20201103
  Serious: Yes (Hospitalization, Other)
  Sender: FDA-Public Use
  Company Number: CH-009507513-2007CHE002280

PATIENT
  Age: 53 Year
  Sex: Female

DRUGS (14)
  1. METFORMIN [Suspect]
     Active Substance: METFORMIN HYDROCHLORIDE
     Dosage: 2 DOSAGE FORM, QD (2 X 500 MG/D)
  2. ATORVASTATIN [Suspect]
     Active Substance: ATORVASTATIN
     Indication: BLOOD CHOLESTEROL ABNORMAL
     Dosage: 40 MILLIGRAM, QD (40 MG/D)
  3. INSULIN DEGLUDEC (+) LIRAGLUTIDE [Suspect]
     Active Substance: INSULIN DEGLUDEC\LIRAGLUTIDE
     Dosage: 34 INTERNATIONAL UNIT, QD (34 U/D)
  4. GLICLAZIDE [Suspect]
     Active Substance: GLICLAZIDE
     Dosage: 60 MILLIGRAM, QD (60 MG/D)
  5. BISOPROLOL [Suspect]
     Active Substance: BISOPROLOL
     Dosage: 10 MILLIGRAM, QD (10 MG/D)
  6. TORSEMIDE. [Suspect]
     Active Substance: TORSEMIDE
     Dosage: 10 MILLIGRAM, QD (10 MG/D)
  7. INSULIN DEGLUDEC (+) LIRAGLUTIDE [Suspect]
     Active Substance: INSULIN DEGLUDEC\LIRAGLUTIDE
     Dosage: 25 INTERNATIONAL UNIT
  8. ASPIRIN. [Suspect]
     Active Substance: ASPIRIN
     Dosage: 100 MILLIGRAM, QD (100 MG/D)
  9. EZETIMIBE. [Suspect]
     Active Substance: EZETIMIBE
     Indication: BLOOD CHOLESTEROL ABNORMAL
     Dosage: 10 MILLIGRAM, QD (10 MG/D)
     Route: 048
  10. LISINOPRIL. [Suspect]
     Active Substance: LISINOPRIL
     Dosage: 20 MILLIGRAM, QD (20 MG/D)
     Route: 048
  11. INSULIN DEGLUDEC (+) LIRAGLUTIDE [Suspect]
     Active Substance: INSULIN DEGLUDEC\LIRAGLUTIDE
     Dosage: 36 INTERNATIONAL UNIT (ONE DOSE UNIT BEING EQUIVALENT TO ONE UNIT OF INSULIN DEGLUDEC AND 0.036 MG L
  12. INSULIN DEGLUDEC (+) LIRAGLUTIDE [Suspect]
     Active Substance: INSULIN DEGLUDEC\LIRAGLUTIDE
     Dosage: 28 INTERNATIONAL UNIT
  13. INSULIN DEGLUDEC (+) LIRAGLUTIDE [Suspect]
     Active Substance: INSULIN DEGLUDEC\LIRAGLUTIDE
     Dosage: 16 INTERNATIONAL UNIT
  14. EMPAGLIFLOZIN (+) METFORMIN HYDROCHLORIDE [Suspect]
     Active Substance: EMPAGLIFLOZIN\METFORMIN HYDROCHLORIDE
     Dosage: 2 X 5 MG/500 MG/D

REACTIONS (20)
  - Urosepsis [Unknown]
  - Hypoglycaemia [Recovered/Resolved]
  - Osteomyelitis [Unknown]
  - Arterial stenosis [Unknown]
  - Dyspepsia [Unknown]
  - Cellulitis [Unknown]
  - Injury [Unknown]
  - Skin ulcer [Unknown]
  - Blood creatinine increased [Unknown]
  - Nausea [Not Recovered/Not Resolved]
  - Retinopathy [Unknown]
  - Impaired healing [Unknown]
  - Cardiac failure [Unknown]
  - Selective eating disorder [Unknown]
  - Urinary tract infection [Recovered/Resolved]
  - Anxiety [Unknown]
  - Diabetic gastroparesis [Unknown]
  - Weight decreased [Unknown]
  - Renal impairment [Unknown]
  - Gastrooesophageal reflux disease [Unknown]
